FAERS Safety Report 5204081-7 (Version None)
Quarter: 2007Q1

REPORT INFORMATION
  Report Type: 
  Country: None (occurrence: None)
  Receive Date: 20070110
  Receipt Date: 20051111
  Transmission Date: 20070707
  Serious: No
  Sender: FDA-Public Use
  Company Number: US-BRISTOL-MYERS SQUIBB COMPANY-13178355

PATIENT
  Age: 44 Year
  Sex: Male

DRUGS (3)
  1. ABILIFY [Suspect]
     Indication: BIPOLAR I DISORDER
     Dates: start: 20051001, end: 20051111
  2. LAMICTAL [Concomitant]
  3. LEXAPRO [Concomitant]

REACTIONS (1)
  - TARDIVE DYSKINESIA [None]
